FAERS Safety Report 17727635 (Version 2)
Quarter: 2020Q2

REPORT INFORMATION
  Report Type: Spontaneous
  Country: NO (occurrence: NO)
  Receive Date: 20200430
  Receipt Date: 20200513
  Transmission Date: 20200714
  Serious: Yes (Death)
  Sender: FDA-Public Use
  Company Number: NO-ACCORD-179987

PATIENT
  Age: 68 Year
  Sex: Female

DRUGS (4)
  1. CAPECITABINE ACCORD [Suspect]
     Active Substance: CAPECITABINE
     Indication: CHEMOTHERAPY
     Dosage: STRENGTH: 500 MG, 2000 MG X 2 FOR 14 DAYS, THEN 1 WEEK PAUSE
     Route: 048
     Dates: start: 20200227, end: 20200312
  2. KLEXANE [Concomitant]
     Active Substance: ENOXAPARIN
     Indication: PHLEBITIS
     Dosage: 8000 IU X 1
     Route: 058
     Dates: start: 20200207
  3. LEVAXIN [Concomitant]
     Active Substance: LEVOTHYROXINE SODIUM
     Indication: HYPOTHYROIDISM
     Dosage: STRENGH: 25 MICROGRAMS
     Route: 048
  4. OXALIPLATIN FRESENIUS KABI [Suspect]
     Active Substance: OXALIPLATIN
     Indication: CHEMOTHERAPY
     Dosage: 260 MG, STRENGTH: 5 MG
     Route: 042
     Dates: start: 20200227, end: 20200227

REACTIONS (2)
  - Neutropenic colitis [Fatal]
  - Neutropenic sepsis [Fatal]

NARRATIVE: CASE EVENT DATE: 20200312
